FAERS Safety Report 25971134 (Version 1)
Quarter: 2025Q4

REPORT INFORMATION
  Report Type: Spontaneous
  Country: US (occurrence: US)
  Receive Date: 20251028
  Receipt Date: 20251028
  Transmission Date: 20260118
  Serious: Yes (Other)
  Sender: AMGEN
  Company Number: US-AMGEN-USASP2025210955

PATIENT

DRUGS (1)
  1. PREDNISONE [Suspect]
     Active Substance: PREDNISONE
     Indication: Ocular pemphigoid
     Dosage: UNK
     Route: 065

REACTIONS (7)
  - Glaucoma [Unknown]
  - Blindness [Unknown]
  - Visual impairment [Unknown]
  - Entropion [Unknown]
  - Trichiasis [Unknown]
  - Corneal scar [Unknown]
  - Lagophthalmos [Unknown]
